FAERS Safety Report 24424986 (Version 8)
Quarter: 2025Q3

REPORT INFORMATION
  Report Type: Report from Study
  Country: US (occurrence: US)
  Receive Date: 20241010
  Receipt Date: 20250901
  Transmission Date: 20251021
  Serious: Yes (Hospitalization)
  Sender: SUNOVION
  Company Number: US-SUMITOMO PHARMA SWITZERLAND GMBH-2024SPA003628

PATIENT
  Age: 84 Year
  Sex: Male

DRUGS (2)
  1. ORGOVYX [Suspect]
     Active Substance: RELUGOLIX
     Indication: Prostate cancer
     Dosage: 120 MG, QD
     Route: 048
     Dates: start: 20241014
  2. BACTRIM [Suspect]
     Active Substance: SULFAMETHOXAZOLE\TRIMETHOPRIM
     Indication: Urinary tract infection

REACTIONS (8)
  - Blood potassium increased [Recovered/Resolved]
  - Endodontic procedure [Unknown]
  - Blood test abnormal [Unknown]
  - Respiratory disorder [Unknown]
  - Urinary tract infection [Unknown]
  - Fatigue [Unknown]
  - Hot flush [Recovered/Resolved]
  - Incorrect dose administered [Recovered/Resolved]
